FAERS Safety Report 21322968 (Version 1)
Quarter: 2022Q3

REPORT INFORMATION
  Report Type: Spontaneous
  Country: FR (occurrence: FR)
  Receive Date: 20220912
  Receipt Date: 20220912
  Transmission Date: 20221027
  Serious: Yes (Other)
  Sender: FDA-Public Use
  Company Number: FR-PFIZER INC-202201148887

PATIENT
  Age: 78 Year
  Sex: Female

DRUGS (3)
  1. METHOTREXATE SODIUM [Suspect]
     Active Substance: METHOTREXATE SODIUM
     Indication: Polymyalgia rheumatica
     Dosage: UNK
  2. PREDNISONE [Suspect]
     Active Substance: PREDNISONE
     Indication: Polymyalgia rheumatica
     Dosage: UNK
  3. FOLIC ACID [Suspect]
     Active Substance: FOLIC ACID
     Indication: Polymyalgia rheumatica
     Dosage: UNK

REACTIONS (5)
  - Glaucoma [Unknown]
  - COVID-19 [Unknown]
  - Rhinitis [Unknown]
  - Herpes zoster [Unknown]
  - Off label use [Unknown]
